FAERS Safety Report 5331369-1 (Version None)
Quarter: 2007Q2

REPORT INFORMATION
  Report Type: 
  Country: None (occurrence: None)
  Receive Date: 20070522
  Receipt Date: 20070514
  Transmission Date: 20071010
  Serious: Yes (Hospitalization)
  Sender: FDA-Public Use
  Company Number: IL-SANOFI-SYNTHELABO-F01200401057

PATIENT
  Sex: Male

DRUGS (8)
  1. NIFEDIPINE [Concomitant]
     Route: 048
     Dates: start: 19990615
  2. OMEPRAZOLE [Concomitant]
     Dosage: UNK
     Route: 065
     Dates: start: 20040129
  3. TRAMADOL HCL [Concomitant]
     Dosage: UNK
     Route: 065
     Dates: start: 20040129
  4. METOPROLOL FUMARATE [Concomitant]
     Dosage: UNK
     Route: 065
     Dates: start: 19990615
  5. MAALOX FAST BLOCKER [Concomitant]
     Dosage: UNK
     Route: 048
     Dates: start: 20040129
  6. OXALIPLATIN [Suspect]
     Indication: COLORECTAL CANCER METASTATIC
     Route: 042
     Dates: start: 20040524, end: 20040524
  7. BEVACIZUMAB [Suspect]
     Dosage: 5 MG/KG OR PLACEBO
     Route: 042
  8. CAPECITABINE [Suspect]
     Dosage: BID FROM D1 TO D15, Q3W
     Route: 048
     Dates: end: 20040604

REACTIONS (3)
  - DIARRHOEA [None]
  - GENERAL PHYSICAL HEALTH DETERIORATION [None]
  - NEUTROPENIA [None]
